FAERS Safety Report 8618452-X (Version None)
Quarter: 2012Q3

REPORT INFORMATION
  Report Type: 
  Country: None (occurrence: None)
  Receive Date: 20120824
  Receipt Date: 20120816
  Transmission Date: 20120928
  Serious: Yes (Hospitalization)
  Sender: FDA-Public Use
  Company Number: FR-GE HEALTHCARE MEDICAL DIAGNOSTICS-VISP-NO-1208S-0337

PATIENT
  Sex: Male

DRUGS (2)
  1. VISIPAQUE [Suspect]
     Indication: THERAPEUTIC EMBOLISATION
     Dosage: DOSE NOT REPORTED
     Route: 013
     Dates: start: 20120709, end: 20120709
  2. VISIPAQUE [Suspect]
     Dosage: DOSE NOT REPORTED
     Route: 013
     Dates: start: 20120710, end: 20120710

REACTIONS (1)
  - VASCULITIS [None]
